FAERS Safety Report 11743258 (Version 1)
Quarter: 2015Q4

REPORT INFORMATION
  Report Type: Spontaneous
  Country: JP (occurrence: JP)
  Receive Date: 20151116
  Receipt Date: 20151116
  Transmission Date: 20160304
  Serious: Yes (Hospitalization)
  Sender: FDA-Public Use
  Company Number: JP-PFIZER INC-2015386894

PATIENT
  Age: 52 Year
  Sex: Male
  Weight: 79 kg

DRUGS (17)
  1. BAYASPIRIN [Concomitant]
     Active Substance: ASPIRIN
  2. LOXOPROFEN SODIUM [Suspect]
     Active Substance: LOXOPROFEN SODIUM
     Indication: BACK PAIN
     Dosage: 60 MG, 2X/DAY
     Route: 048
     Dates: start: 20150731
  3. NESINA [Concomitant]
     Active Substance: ALOGLIPTIN BENZOATE
  4. BASEN /01290601/ [Concomitant]
     Active Substance: VOGLIBOSE
  5. POLARAMINE [Concomitant]
     Active Substance: DEXCHLORPHENIRAMINE MALEATE
  6. TAKEPRON [Concomitant]
     Active Substance: LANSOPRAZOLE
  7. GLIMICRON [Concomitant]
     Active Substance: GLICLAZIDE
  8. CLOPIDOGREL [Concomitant]
     Active Substance: CLOPIDOGREL BISULFATE
  9. CALTAN [Concomitant]
     Active Substance: CALCIUM CARBONATE
  10. MUCOSTA [Concomitant]
     Active Substance: REBAMIPIDE
  11. DEPAS [Concomitant]
     Active Substance: ETIZOLAM
  12. LYRICA [Suspect]
     Active Substance: PREGABALIN
     Indication: BACK PAIN
     Dosage: 25 MG, 1X/DAY
     Route: 048
     Dates: start: 20150919, end: 20150927
  13. MAINTATE [Concomitant]
     Active Substance: BISOPROLOL FUMARATE
  14. KIKLIN [Concomitant]
     Active Substance: BIXALOMER
  15. REGPARA [Concomitant]
     Active Substance: CINACALCET HYDROCHLORIDE
     Route: 048
  16. DORNER [Concomitant]
     Active Substance: BERAPROST SODIUM
  17. RIZE /00624801/ [Concomitant]
     Active Substance: CLOTIAZEPAM

REACTIONS (5)
  - Muscular weakness [Recovered/Resolved]
  - Dizziness [Recovered/Resolved]
  - Movement disorder [Unknown]
  - Somnolence [Recovered/Resolved]
  - Fall [Unknown]

NARRATIVE: CASE EVENT DATE: 2015
